FAERS Safety Report 7934294-2 (Version None)
Quarter: 2011Q4

REPORT INFORMATION
  Report Type: 
  Country: None (occurrence: None)
  Receive Date: 20111122
  Receipt Date: 20110829
  Transmission Date: 20120403
  Serious: No
  Sender: FDA-Public Use
  Company Number: US-BAYER-2011-085929

PATIENT
  Sex: Female

DRUGS (2)
  1. ASPIRIN [Suspect]
     Indication: PAIN
     Dosage: UNK, QD
     Route: 048
  2. ALEVE (CAPLET) [Suspect]
     Indication: EYELID PAIN
     Dosage: 1 DF, QD
     Route: 048

REACTIONS (2)
  - PAIN [None]
  - NO ADVERSE EVENT [None]
